FAERS Safety Report 19926820 (Version 1)
Quarter: 2021Q4

REPORT INFORMATION
  Report Type: Spontaneous
  Country: CN (occurrence: CN)
  Receive Date: 20211007
  Receipt Date: 20211007
  Transmission Date: 20220303
  Serious: Yes (Other)
  Sender: FDA-Public Use
  Company Number: CN-ROCHE-2925521

PATIENT
  Age: 53 Year
  Sex: Female
  Weight: 62 kg

DRUGS (4)
  1. XELODA [Suspect]
     Active Substance: CAPECITABINE
     Indication: Colon cancer
     Dosage: 3 TABLETS IN THE MORNING AND 3 TABLETS IN THE EVENING
     Route: 048
     Dates: start: 20210611
  2. XELODA [Suspect]
     Active Substance: CAPECITABINE
     Route: 048
     Dates: start: 20210917, end: 20210927
  3. OXALIPLATIN [Suspect]
     Active Substance: OXALIPLATIN
     Indication: Colon cancer
     Route: 041
     Dates: start: 20210611
  4. OXALIPLATIN [Suspect]
     Active Substance: OXALIPLATIN
     Route: 041
     Dates: start: 20210917, end: 20210917

REACTIONS (4)
  - Nausea [Recovering/Resolving]
  - Myelosuppression [Recovering/Resolving]
  - Abdominal discomfort [Unknown]
  - Liver injury [Unknown]

NARRATIVE: CASE EVENT DATE: 20210920
